FAERS Safety Report 7417717-7 (Version None)
Quarter: 2011Q2

REPORT INFORMATION
  Report Type: 
  Country: None (occurrence: None)
  Receive Date: 20110415
  Receipt Date: 20110408
  Transmission Date: 20111010
  Serious: Yes (Other)
  Sender: FDA-Public Use
  Company Number: PHHY2011BE30650

PATIENT
  Sex: Male

DRUGS (5)
  1. VOLTAREN [Suspect]
     Indication: ANKYLOSING SPONDYLITIS
     Dosage: 75 MG, BID
     Route: 048
     Dates: end: 20110324
  2. MEDROL [Suspect]
     Indication: ANKYLOSING SPONDYLITIS
     Dosage: 16 MG
     Dates: end: 20110324
  3. ENBREL [Suspect]
     Indication: ANKYLOSING SPONDYLITIS
     Dosage: 50 MG, WEEKLY
     Route: 058
     Dates: start: 20060905, end: 20110324
  4. MEDROL [Suspect]
     Dosage: 4 TO 8 MG DAILY
  5. DURAGESIC [Concomitant]
     Dosage: 100 GAMMA PATCH EVERY 3 DAY
     Route: 062

REACTIONS (11)
  - HEART RATE INCREASED [None]
  - BLOOD PRESSURE INCREASED [None]
  - OEDEMA PERIPHERAL [None]
  - CONGESTIVE CARDIOMYOPATHY [None]
  - EJECTION FRACTION DECREASED [None]
  - CARDIOMEGALY [None]
  - CARDIAC HYPERTROPHY [None]
  - DILATATION VENTRICULAR [None]
  - PLEURAL EFFUSION [None]
  - VENTRICULAR HYPOKINESIA [None]
  - DYSPNOEA EXERTIONAL [None]
